FAERS Safety Report 6203640-2 (Version None)
Quarter: 2009Q2

REPORT INFORMATION
  Report Type: 
  Country: None (occurrence: None)
  Receive Date: 20090521
  Receipt Date: 20090508
  Transmission Date: 20091009
  Serious: Yes (Other)
  Sender: FDA-Public Use
  Company Number: TRP_06159_2009

PATIENT
  Sex: Female
  Weight: 46.7205 kg

DRUGS (3)
  1. RIBASPHERE [Suspect]
     Indication: HEPATITIS C
     Dosage: (400 MG BID ORAL)
     Route: 048
     Dates: start: 20080711
  2. PEGASYS [Suspect]
     Indication: HEPATITIS C
     Dosage: (180 ?G 1X/WEEK SUBCUTANEOUS)
     Route: 058
     Dates: start: 20080711
  3. TYLENOL (CAPLET) [Concomitant]

REACTIONS (10)
  - ABDOMINAL PAIN [None]
  - AMNESIA [None]
  - ANAEMIA [None]
  - CONDITION AGGRAVATED [None]
  - DYSPEPSIA [None]
  - HYPERTENSION [None]
  - MENTAL DISORDER [None]
  - MYOPIA [None]
  - RETINAL EXUDATES [None]
  - WEIGHT DECREASED [None]
